FAERS Safety Report 4713726-7 (Version None)
Quarter: 2005Q3

REPORT INFORMATION
  Report Type: 
  Country: None (occurrence: None)
  Receive Date: 20050713
  Receipt Date: 20050627
  Transmission Date: 20060218
  Serious: Yes (Other)
  Sender: FDA-Public Use
  Company Number: US_990624215

PATIENT
  Age: 70 Year
  Sex: Male
  Weight: 86 kg

DRUGS (4)
  1. HUMULIN N [Suspect]
     Indication: DIABETES MELLITUS
     Dates: start: 19970101
  2. NPH ILETIN I (BEEF-PORK) [Suspect]
     Indication: DIABETES MELLITUS
     Dosage: 54 U/DAY
     Dates: start: 19830101
  3. REGULAR ILETIN II [Suspect]
     Indication: DIABETES MELLITUS
     Dates: start: 19830101
  4. HUMULIN R [Suspect]
     Indication: DIABETES MELLITUS
     Dates: start: 19970101

REACTIONS (13)
  - AMNESIA [None]
  - ANXIETY [None]
  - BLINDNESS UNILATERAL [None]
  - BLOOD GLUCOSE INCREASED [None]
  - CARDIAC DISORDER [None]
  - CATARACT [None]
  - GENERAL PHYSICAL HEALTH DETERIORATION [None]
  - INAPPROPRIATE SCHEDULE OF DRUG ADMINISTRATION [None]
  - INJECTION SITE IRRITATION [None]
  - INJECTION SITE PAIN [None]
  - MEDICATION ERROR [None]
  - PAIN [None]
  - PHARMACEUTICAL PRODUCT COMPLAINT [None]
